FAERS Safety Report 22614731 (Version 1)
Quarter: 2023Q2

REPORT INFORMATION
  Report Type: Spontaneous
  Country: JP (occurrence: JP)
  Receive Date: 20230619
  Receipt Date: 20230619
  Transmission Date: 20230722
  Serious: No
  Sender: FDA-Public Use
  Company Number: JP-PFM-2022-02447

PATIENT
  Age: 0 Year
  Sex: Female
  Weight: 8.92 kg

DRUGS (9)
  1. PROPRANOLOL HYDROCHLORIDE [Suspect]
     Active Substance: PROPRANOLOL HYDROCHLORIDE
     Indication: Infantile haemangioma
     Dosage: 0.6 ML/DAY (0.3 ML/12 HOURS)
     Route: 048
     Dates: start: 20210720, end: 20210720
  2. PROPRANOLOL HYDROCHLORIDE [Suspect]
     Active Substance: PROPRANOLOL HYDROCHLORIDE
     Dosage: 1.4 ML/DAY (0.7 ML/12 HOURS)
     Route: 048
     Dates: start: 20210721, end: 20210722
  3. PROPRANOLOL HYDROCHLORIDE [Suspect]
     Active Substance: PROPRANOLOL HYDROCHLORIDE
     Dosage: 2.6 ML/DAY (1.3 ML/12 HOURS)
     Route: 048
     Dates: start: 20210723, end: 20210805
  4. PROPRANOLOL HYDROCHLORIDE [Suspect]
     Active Substance: PROPRANOLOL HYDROCHLORIDE
     Dosage: 3.0 ML/DAY (1.5 ML/12 HOURS)
     Route: 048
     Dates: start: 20210806, end: 20210909
  5. PROPRANOLOL HYDROCHLORIDE [Suspect]
     Active Substance: PROPRANOLOL HYDROCHLORIDE
     Dosage: 3.6 ML/DAY (1.8 ML/12 HOURS)
     Route: 048
     Dates: start: 20210910, end: 20211111
  6. PROPRANOLOL HYDROCHLORIDE [Suspect]
     Active Substance: PROPRANOLOL HYDROCHLORIDE
     Dosage: 4.2 ML/DAY (2.1 ML/12 HOURS)
     Route: 048
     Dates: start: 20211112, end: 20211216
  7. PROPRANOLOL HYDROCHLORIDE [Suspect]
     Active Substance: PROPRANOLOL HYDROCHLORIDE
     Dosage: 4.4 ML/DAY (2.2 ML/12 HOURS)
     Route: 048
     Dates: start: 20211217, end: 20220208
  8. PROPRANOLOL HYDROCHLORIDE [Suspect]
     Active Substance: PROPRANOLOL HYDROCHLORIDE
     Dosage: 4.8 ML/DAY (2 MG/KG/DAY) (2.4 ML/12 HOURS)
     Route: 048
     Dates: start: 20220209, end: 20220315
  9. PROPRANOLOL HYDROCHLORIDE [Suspect]
     Active Substance: PROPRANOLOL HYDROCHLORIDE
     Dosage: 2.4 ML/DAY (1 MG/KG/DAY) (1.2 ML/12 HOURS)
     Route: 048
     Dates: start: 20220316, end: 20220417

REACTIONS (5)
  - Blood creatine phosphokinase increased [Recovered/Resolved]
  - Motor developmental delay [Recovered/Resolved]
  - Constipation [Recovered/Resolved]
  - Product use issue [Unknown]
  - Off label use [Unknown]

NARRATIVE: CASE EVENT DATE: 20220222
